FAERS Safety Report 12863160 (Version 2)
Quarter: 2017Q1

REPORT INFORMATION
  Report Type: Spontaneous
  Country: US (occurrence: US)
  Receive Date: 20161019
  Receipt Date: 20170120
  Transmission Date: 20170428
  Serious: No
  Sender: FDA-Public Use
  Company Number: US-OTSUKA-2016_023939

PATIENT
  Age: 31 Year
  Sex: Female
  Weight: 81.63 kg

DRUGS (2)
  1. REXULTI [Suspect]
     Active Substance: BREXPIPRAZOLE
     Indication: MAJOR DEPRESSION
     Dosage: UNK (STARTER KIT)
     Route: 065
     Dates: start: 20160602, end: 2016
  2. REXULTI [Suspect]
     Active Substance: BREXPIPRAZOLE
     Indication: ADJUVANT THERAPY
     Dosage: 3 MG, QD
     Route: 048
     Dates: start: 20160713

REACTIONS (3)
  - Sinusitis [Unknown]
  - Dysphonia [Not Recovered/Not Resolved]
  - Drug ineffective [Unknown]

NARRATIVE: CASE EVENT DATE: 20161005
